FAERS Safety Report 21693794 (Version 2)
Quarter: 2022Q4

REPORT INFORMATION
  Report Type: Report from Study
  Country: FR (occurrence: FR)
  Receive Date: 20221207
  Receipt Date: 20221223
  Transmission Date: 20230113
  Serious: Yes (Death, Other)
  Sender: FDA-Public Use
  Company Number: FR-GLAXOSMITHKLINE-FR2022EME180580

PATIENT

DRUGS (1)
  1. BELANTAMAB MAFODOTIN [Suspect]
     Active Substance: BELANTAMAB MAFODOTIN
     Indication: Plasma cell myeloma
     Dosage: 1 DF, WE, UNK, 2.5 MG/KG/DOSE 1 DOSE/WEEK 1 WEEK/CYCLE
     Dates: end: 20201207

REACTIONS (1)
  - Plasma cell myeloma [Fatal]
